FAERS Safety Report 9146281 (Version 5)
Quarter: 2013Q2

REPORT INFORMATION
  Report Type: Spontaneous
  Country: US (occurrence: US)
  Receive Date: 20130307
  Receipt Date: 20130610
  Transmission Date: 20140414
  Serious: Yes (Other)
  Sender: FDA-Public Use
  Company Number: US-PFIZER INC-2013074954

PATIENT
  Age: 61 Year
  Sex: Female
  Weight: 83.9 kg

DRUGS (23)
  1. GEODON [Suspect]
     Indication: BIPOLAR DISORDER
     Dosage: 80 MG, 2X/DAY
     Route: 048
     Dates: start: 2004
  2. GEODON [Suspect]
     Indication: SCHIZOAFFECTIVE DISORDER
     Dosage: HALF THE DOSE OF 80 MG BID
     Route: 048
  3. GEODON [Suspect]
     Indication: PSYCHOTIC DISORDER
     Dosage: 80 MG, 2X/DAY
     Route: 048
  4. NOVOLIN GE NPH [Concomitant]
     Indication: DIABETES MELLITUS
     Dosage: UNK
  5. METFORMIN [Concomitant]
     Indication: DIABETES MELLITUS
     Dosage: 100 MG, 2X/DAY
  6. METFORMIN [Concomitant]
     Dosage: 1000 MG, 2X/DAY
  7. NOVOLIN N [Concomitant]
     Dosage: 10 IU, 2X/DAY
  8. LISINOPRIL [Concomitant]
     Indication: HYPERTENSION
     Dosage: 40 MG, 1X/DAY
  9. ATENOLOL [Concomitant]
     Indication: HYPERTENSION
     Dosage: 50 MG, 2X/DAY
  10. FUROSEMIDE [Concomitant]
     Dosage: 20 MG, 1X/DAY
  11. FUROSEMIDE [Concomitant]
     Dosage: 10 MG, 1X/DAY
  12. LEVOXINE [Concomitant]
     Dosage: 50 UG, 1X/DAY
  13. RANITIDINE [Concomitant]
     Dosage: 150 MG TWICE DAILY, AS NEEDED
  14. RANITIDINE [Concomitant]
     Dosage: 150 MG, 2X/DAY
  15. ZOLPIDEM [Concomitant]
     Dosage: 10 MG, 1X/DAY (QHS)
  16. LORAZEPAM [Concomitant]
     Dosage: 1 MG, 3X/DAY
  17. POTASSIUM CHLORIDE [Concomitant]
     Dosage: 10 MEQ, 1X/DAY
  18. CITALOPRAM [Concomitant]
     Dosage: 20 MG 1X/DAY
  19. CITALOPRAM [Concomitant]
     Dosage: 10 MG, 1X/DAY
  20. IBUPROFEN [Concomitant]
     Dosage: 800 MG TWICE DAILY AS NEEDED
  21. BENADRYL [Concomitant]
     Dosage: 25 MG TWICE DAILY AS NEEDED
  22. BENADRYL [Concomitant]
     Dosage: 50 MG, 1X/DAY
  23. NOVOLIN [Concomitant]
     Dosage: 10 IU, 2X/DAY

REACTIONS (4)
  - Macular hole [Recovering/Resolving]
  - Retinal injury [Not Recovered/Not Resolved]
  - Eye disorder [Unknown]
  - Malaise [Unknown]
